FAERS Safety Report 5711309-3 (Version None)
Quarter: 2008Q2

REPORT INFORMATION
  Report Type: 
  Country: None (occurrence: None)
  Receive Date: 20080418
  Receipt Date: 20080418
  Transmission Date: 20081010
  Serious: Yes (Other)
  Sender: FDA-Public Use
  Company Number: None

PATIENT
  Sex: Female

DRUGS (1)
  1. PROPOFOL [Suspect]
     Indication: ANALGESIA
     Dosage: VARIED
     Dates: start: 20080221, end: 20080320

REACTIONS (1)
  - GRAND MAL CONVULSION [None]
